FAERS Safety Report 11756062 (Version 1)
Quarter: 2015Q4

REPORT INFORMATION
  Report Type: Spontaneous
  Country: US (occurrence: US)
  Receive Date: 20151119
  Receipt Date: 20151119
  Transmission Date: 20160304
  Serious: No
  Sender: FDA-Public Use
  Company Number: US-ALLERGAN-1515043US

PATIENT
  Age: 60 Year
  Sex: Female

DRUGS (2)
  1. ALPHAGAN P [Suspect]
     Active Substance: BRIMONIDINE TARTRATE
     Indication: RETINAL OPERATION
     Dosage: 1 GTT, TID
     Route: 047
     Dates: start: 20150801, end: 20150801
  2. ALPHAGAN P [Suspect]
     Active Substance: BRIMONIDINE TARTRATE
     Dosage: 1 GTT, TID
     Route: 047
     Dates: start: 20150801, end: 20150801

REACTIONS (4)
  - Off label use [Unknown]
  - Eye discharge [Unknown]
  - Eye swelling [Unknown]
  - Lacrimation increased [Unknown]

NARRATIVE: CASE EVENT DATE: 201508
